FAERS Safety Report 17209073 (Version 2)
Quarter: 2019Q4

REPORT INFORMATION
  Report Type: Spontaneous
  Country: US (occurrence: US)
  Receive Date: 20191227
  Receipt Date: 20191231
  Transmission Date: 20200122
  Serious: Yes (Other)
  Sender: FDA-Public Use
  Company Number: US-PFIZER INC-2018362271

PATIENT
  Age: 67 Year
  Sex: Male
  Weight: 98.87 kg

DRUGS (6)
  1. TIKOSYN [Suspect]
     Active Substance: DOFETILIDE
     Dosage: 250 UG, TWICE A DAY
  2. TIKOSYN [Suspect]
     Active Substance: DOFETILIDE
     Dosage: 750 UG, DAILY (125 MCG, 3 CAPSULES IN MORNING AND 3 AT NIGHT)
     Dates: start: 2011
  3. MELOXICAM. [Concomitant]
     Active Substance: MELOXICAM
     Dosage: UNK
  4. WARFARIN [Concomitant]
     Active Substance: WARFARIN
     Dosage: 5 MG, 2X/WEEK (ON TUESDAY AND FRIDAY)
     Dates: start: 2011
  5. TIKOSYN [Suspect]
     Active Substance: DOFETILIDE
     Indication: ATRIAL FIBRILLATION
     Dosage: 500 UG, UNK
     Route: 048
     Dates: start: 2011
  6. WARFARIN [Concomitant]
     Active Substance: WARFARIN
     Dosage: 0.5 MG, THE REST OF THE DAYS OF THE WEEK

REACTIONS (2)
  - Off label use [Unknown]
  - Electrocardiogram QT interval abnormal [Recovering/Resolving]

NARRATIVE: CASE EVENT DATE: 2011
